FAERS Safety Report 15717247 (Version 1)
Quarter: 2018Q4

REPORT INFORMATION
  Report Type: Spontaneous
  Country: CN (occurrence: CN)
  Receive Date: 20181213
  Receipt Date: 20181213
  Transmission Date: 20190205
  Serious: Yes (Hospitalization)
  Sender: FDA-Public Use
  Company Number: PHHY2018CN179196

PATIENT
  Age: 41 Month
  Sex: Female

DRUGS (1)
  1. DEXAMETHASONE. [Suspect]
     Active Substance: DEXAMETHASONE
     Indication: PRODUCT USED FOR UNKNOWN INDICATION
     Route: 065

REACTIONS (5)
  - Vomiting [Recovered/Resolved]
  - Gastric perforation [Recovered/Resolved]
  - Abdominal distension [Recovered/Resolved]
  - Hyperpyrexia [Recovered/Resolved]
  - Ileus [Recovered/Resolved]
